FAERS Safety Report 15400280 (Version 4)
Quarter: 2019Q4

REPORT INFORMATION
  Report Type: Spontaneous
  Country: US (occurrence: US)
  Receive Date: 20180919
  Receipt Date: 20191025
  Transmission Date: 20200122
  Serious: Yes (Hospitalization)
  Sender: FDA-Public Use
  Company Number: US-009507513-1809USA003878

PATIENT
  Age: 58 Year
  Sex: Female

DRUGS (10)
  1. STERILE DILUENT (WATER) [Suspect]
     Active Substance: WATER
     Indication: MALIGNANT MELANOMA
     Dosage: 4.5 MILLION UNITS UNDER THE SKIN, DAILY
     Route: 058
  2. ACETAMINOPHEN (+) OXYCODONE HYDROCHLORIDE [Concomitant]
     Active Substance: ACETAMINOPHEN\OXYCODONE HYDROCHLORIDE
     Dosage: UNK
  3. INTRON A [Suspect]
     Active Substance: INTERFERON ALFA-2B
     Indication: MALIGNANT MELANOMA
     Dosage: 4.5 MILLION UNITS UNDER THE SKIN, QD
     Route: 058
  4. ACETAMINOPHEN (+) HYDROCODONE BITARTRATE [Concomitant]
     Active Substance: ACETAMINOPHEN\HYDROCODONE BITARTRATE
     Dosage: UNK
  5. INTRON A [Suspect]
     Active Substance: INTERFERON ALFA-2B
     Dosage: 0.45 MILLILITER (4.5 MM), QD
     Route: 058
  6. FUROSEMIDE. [Concomitant]
     Active Substance: FUROSEMIDE
     Dosage: UNK
  7. TRAMADOL HYDROCHLORIDE. [Concomitant]
     Active Substance: TRAMADOL HYDROCHLORIDE
     Dosage: UNK
  8. INTRON A [Suspect]
     Active Substance: INTERFERON ALFA-2B
     Dosage: 4.5 MILLION UNITS UNDER THE SKIN, QD
  9. GABAPENTIN. [Concomitant]
     Active Substance: GABAPENTIN
     Dosage: UNK
  10. CYCLOBENZAPRINE HYDROCHLORIDE. [Concomitant]
     Active Substance: CYCLOBENZAPRINE HYDROCHLORIDE
     Dosage: UNK

REACTIONS (2)
  - Adverse event [Unknown]
  - Spinal operation [Unknown]

NARRATIVE: CASE EVENT DATE: 20191016
